FAERS Safety Report 6859922-4 (Version None)
Quarter: 2010Q3

REPORT INFORMATION
  Report Type: 
  Country: None (occurrence: None)
  Receive Date: 20100720
  Receipt Date: 20100707
  Transmission Date: 20110219
  Serious: Yes (Other)
  Sender: FDA-Public Use
  Company Number: NL-ELI_LILLY_AND_COMPANY-NL201006007117

PATIENT
  Sex: Female
  Weight: 60 kg

DRUGS (6)
  1. FORTEO [Suspect]
     Indication: OSTEOPOROSIS
     Dosage: 20 UG, UNKNOWN
     Route: 058
     Dates: start: 20100108
  2. CALCI CHEW D3 [Concomitant]
     Indication: OSTEOPOROSIS
     Dosage: 500 MG, DAILY (1/D)
     Route: 048
  3. ENALAPRIL MALEATE [Concomitant]
     Indication: BLOOD PRESSURE INCREASED
     Dosage: 5 MG, DAILY (1/D)
     Route: 048
  4. HYDROCHLOROTHIAZIDE [Concomitant]
     Indication: BLOOD PRESSURE INCREASED
     Dosage: 12.5 MG, DAILY (1/D)
     Route: 048
  5. SOTALOL [Concomitant]
     Indication: HEART RATE DECREASED
     Dosage: 80 MG, 2/D
     Route: 048
     Dates: start: 20000101
  6. SUCRALFATE [Concomitant]
     Dosage: 1 G, DAILY (1/D) 1-3 SACHET
     Route: 048

REACTIONS (3)
  - BLADDER PAIN [None]
  - GENERALISED OEDEMA [None]
  - HEART RATE INCREASED [None]
